FAERS Safety Report 12456001 (Version 1)
Quarter: 2016Q2

REPORT INFORMATION
  Report Type: Spontaneous
  Country: ZA (occurrence: ZA)
  Receive Date: 20160610
  Receipt Date: 20160610
  Transmission Date: 20160815
  Serious: Yes (Hospitalization)
  Sender: FDA-Public Use
  Company Number: ZA-MYLANLABS-2016M1024182

PATIENT

DRUGS (6)
  1. TENOFOVIR [Suspect]
     Active Substance: TENOFOVIR
     Dosage: 300 + 300 MG
     Route: 065
  2. NEVIRAPINE. [Suspect]
     Active Substance: NEVIRAPINE
     Dosage: 400 + 400 MG
     Route: 065
  3. TENOFOVIR [Suspect]
     Active Substance: TENOFOVIR
     Indication: HIV INFECTION
     Dosage: 300MG DAILY
     Route: 065
  4. LAMIVUDINE. [Suspect]
     Active Substance: LAMIVUDINE
     Indication: HIV INFECTION
     Dosage: 300MG DAILY
     Route: 065
  5. LAMIVUDINE. [Suspect]
     Active Substance: LAMIVUDINE
     Dosage: 300 + 300 MG
     Route: 065
  6. NEVIRAPINE. [Suspect]
     Active Substance: NEVIRAPINE
     Indication: HIV INFECTION
     Dosage: 400MG DAILY
     Route: 065

REACTIONS (4)
  - Toxicity to various agents [Recovering/Resolving]
  - Drug dose omission [Unknown]
  - Stevens-Johnson syndrome [Recovering/Resolving]
  - Overdose [Recovering/Resolving]
